FAERS Safety Report 7875512-9 (Version None)
Quarter: 2011Q4

REPORT INFORMATION
  Report Type: 
  Country: None (occurrence: None)
  Receive Date: 20111031
  Receipt Date: 20111025
  Transmission Date: 20120403
  Serious: Yes (Hospitalization)
  Sender: FDA-Public Use
  Company Number: AU-B.I. PHARMACEUTICALS,INC./RIDGEFIELD-2011-AU-01957AU

PATIENT
  Sex: Male

DRUGS (1)
  1. PRADAXA [Suspect]
     Indication: PULMONARY EMBOLISM

REACTIONS (7)
  - UPPER GASTROINTESTINAL HAEMORRHAGE [None]
  - MELAENA [None]
  - GASTRIC ULCER [None]
  - ANAEMIA [None]
  - SYNCOPE [None]
  - HAEMATEMESIS [None]
  - HELICOBACTER INFECTION [None]
